FAERS Safety Report 8911795 (Version 2)
Quarter: 2012Q4

REPORT INFORMATION
  Report Type: Report from Study
  Country: JP (occurrence: JP)
  Receive Date: 20121115
  Receipt Date: 20121218
  Transmission Date: 20130627
  Serious: Yes (Hospitalization, Other)
  Sender: FDA-Public Use
  Company Number: JP-ACTELION-A-CH2012-74431

PATIENT
  Age: 45 Year
  Sex: Female
  Weight: 42.1 kg

DRUGS (22)
  1. TRACLEER [Suspect]
     Indication: PULMONARY ARTERIAL HYPERTENSION
     Dosage: 31.25 mg, qd
     Route: 048
     Dates: start: 20080225, end: 20080302
  2. TRACLEER [Suspect]
     Dosage: 31.25 mg, bid
     Route: 048
     Dates: start: 20080303
  3. TRACLEER [Suspect]
     Dosage: 62.5 mg, bid
     Route: 048
  4. EPOPROSTENOL SODIUM [Suspect]
     Dosage: UNK
     Route: 041
     Dates: end: 20090312
  5. EPOPROSTENOL SODIUM [Suspect]
     Dosage: UNK
     Route: 041
     Dates: start: 20090313, end: 20090416
  6. EPOPROSTENOL SODIUM [Suspect]
     Dosage: UNK
     Route: 041
     Dates: start: 20090414
  7. SILDENAFIL CITRATE [Suspect]
     Dosage: 5 mg, UNK
     Route: 048
     Dates: start: 20090511, end: 20090513
  8. SILDENAFIL CITRATE [Suspect]
     Dosage: 7.5 mg, bid
     Route: 048
     Dates: start: 20090514, end: 20090520
  9. SILDENAFIL CITRATE [Suspect]
     Dosage: 20 mg, UNK
     Route: 048
     Dates: start: 20090521, end: 20090531
  10. SILDENAFIL CITRATE [Suspect]
     Dosage: 28 mg, qd
     Route: 048
     Dates: start: 20090601, end: 20090617
  11. SILDENAFIL CITRATE [Suspect]
     Dosage: 24 mg, UNK
     Route: 048
     Dates: start: 20090618
  12. POTASSIUM CHLORIDE [Suspect]
     Dosage: UNK
     Route: 048
     Dates: start: 20090508
  13. WARFARIN POTASSIUM [Concomitant]
  14. TRICHLORMETHIAZIDE [Concomitant]
  15. LEVOTHYROXINE [Concomitant]
  16. SPIRONOLACTONE [Concomitant]
  17. FUROSEMIDE [Concomitant]
  18. DIGOXIN [Concomitant]
  19. ASPARTATE POTASSIUM [Concomitant]
  20. ALLOPURINOL [Concomitant]
  21. POTASSIUM GLUCONATE [Concomitant]
  22. OXYGEN [Concomitant]

REACTIONS (7)
  - Hyperkalaemia [Not Recovered/Not Resolved]
  - Cardiac failure [Not Recovered/Not Resolved]
  - Atrial tachycardia [Recovered/Resolved]
  - Iron deficiency anaemia [Recovering/Resolving]
  - Helicobacter infection [Recovered/Resolved]
  - Duodenal ulcer haemorrhage [Recovered/Resolved]
  - Diarrhoea [Recovered/Resolved]
